FAERS Safety Report 23569316 (Version 1)
Quarter: 2024Q1

REPORT INFORMATION
  Report Type: Spontaneous
  Country: US (occurrence: US)
  Receive Date: 20240227
  Receipt Date: 20240227
  Transmission Date: 20240410
  Serious: Yes (Hospitalization, Other)
  Sender: FDA-Public Use
  Company Number: US-MLMSERVICE-20240212-4828006-1

PATIENT
  Sex: Male

DRUGS (1)
  1. LEVETIRACETAM [Suspect]
     Active Substance: LEVETIRACETAM
     Indication: Seizure prophylaxis
     Dosage: UNK

REACTIONS (4)
  - Affect lability [Unknown]
  - Impulsive behaviour [Recovering/Resolving]
  - Irritability [Recovering/Resolving]
  - Agitation [Recovering/Resolving]
